FAERS Safety Report 10751651 (Version 8)
Quarter: 2017Q3

REPORT INFORMATION
  Report Type: Report from Study
  Country: US (occurrence: US)
  Receive Date: 20150130
  Receipt Date: 20170908
  Transmission Date: 20171127
  Serious: Yes (Other)
  Sender: FDA-Public Use
  Company Number: US-SA-2015SA000576

PATIENT
  Age: 60 Year
  Sex: Female

DRUGS (3)
  1. AUBAGIO [Suspect]
     Active Substance: TERIFLUNOMIDE
     Indication: MULTIPLE SCLEROSIS
     Route: 048
     Dates: start: 20141205
  2. AUBAGIO [Suspect]
     Active Substance: TERIFLUNOMIDE
     Indication: MULTIPLE SCLEROSIS
     Route: 048
  3. AUBAGIO [Suspect]
     Active Substance: TERIFLUNOMIDE
     Indication: MULTIPLE SCLEROSIS
     Route: 048
     Dates: start: 20141127

REACTIONS (17)
  - Fall [Unknown]
  - Temperature intolerance [Unknown]
  - Gait disturbance [Unknown]
  - Alopecia [Unknown]
  - Eye operation [Unknown]
  - Back pain [Unknown]
  - Musculoskeletal stiffness [Unknown]
  - Abdominal pain [Unknown]
  - Paraesthesia [Recovered/Resolved]
  - Muscle spasms [Unknown]
  - Drug dose omission [Unknown]
  - Injury [Unknown]
  - Nervousness [Not Recovered/Not Resolved]
  - Balance disorder [Unknown]
  - Swelling face [Unknown]
  - Visual impairment [Not Recovered/Not Resolved]
  - Alopecia [Unknown]

NARRATIVE: CASE EVENT DATE: 201412
